FAERS Safety Report 8311114-8 (Version None)
Quarter: 2012Q2

REPORT INFORMATION
  Report Type: 
  Country: None (occurrence: None)
  Receive Date: 20120425
  Receipt Date: 20120418
  Transmission Date: 20120825
  Serious: Yes (Hospitalization)
  Sender: FDA-Public Use
  Company Number: IT-ABBOTT-12P-083-0922082-00

PATIENT
  Sex: Male

DRUGS (6)
  1. ZYPREXA [Suspect]
     Route: 048
     Dates: start: 20110130, end: 20110130
  2. DEPAKIN GASTRO-RESISTANT TABLET [Suspect]
     Route: 048
     Dates: start: 20120130, end: 20120130
  3. DEPAKIN GASTRO-RESISTANT TABLET [Suspect]
     Indication: BORDERLINE PERSONALITY DISORDER
     Route: 048
  4. LORAZEPAM [Suspect]
     Indication: INTENTIONAL OVERDOSE
     Route: 048
     Dates: start: 20120130, end: 20120130
  5. DIAZEPAM [Concomitant]
     Indication: PRODUCT USED FOR UNKNOWN INDICATION
  6. ZYPREXA [Suspect]
     Indication: BORDERLINE PERSONALITY DISORDER
     Route: 048

REACTIONS (4)
  - SOPOR [None]
  - MULTIPLE DRUG OVERDOSE INTENTIONAL [None]
  - SINUS BRADYCARDIA [None]
  - HYPOTENSION [None]
